FAERS Safety Report 6251069-3 (Version None)
Quarter: 2009Q2

REPORT INFORMATION
  Report Type: 
  Country: None (occurrence: None)
  Receive Date: 20090630
  Receipt Date: 20090109
  Transmission Date: 20091009
  Serious: No
  Sender: FDA-Public Use
  Company Number: US-ABBOTT-08P-163-0493127-00

PATIENT
  Sex: Male
  Weight: 90.8 kg

DRUGS (7)
  1. ZEMPLAR [Suspect]
     Indication: RENAL DISORDER
     Route: 048
     Dates: start: 20080801
  2. ZEMPLAR [Suspect]
     Route: 048
  3. RENEXA [Concomitant]
     Indication: CARDIAC DISORDER
     Dosage: UNSURE OF STRENGTH
     Route: 048
  4. GLYBURIDE [Concomitant]
     Indication: DIABETES MELLITUS
     Dosage: UNSURE OF STRENGTH OR FREQUENCY
     Route: 048
  5. ISOSORBIDE [Concomitant]
     Indication: CARDIAC DISORDER
     Dosage: UNSURE OF STRENGTH AND FREQUENCY
     Route: 048
  6. PLAVIX [Concomitant]
     Indication: CARDIAC OPERATION
     Route: 048
  7. CARVEDILOL [Concomitant]
     Indication: ANGINA PECTORIS
     Route: 048

REACTIONS (2)
  - PRURITUS [None]
  - SKIN NODULE [None]
